FAERS Safety Report 9280751 (Version 2)
Quarter: 2013Q2

REPORT INFORMATION
  Report Type: Spontaneous
  Country: GB (occurrence: GB)
  Receive Date: 20130509
  Receipt Date: 20130617
  Transmission Date: 20140414
  Serious: Yes (Hospitalization)
  Sender: FDA-Public Use
  Company Number: GB-PFIZER INC-HQ5194312NOV2002

PATIENT
  Age: 77 Year
  Sex: Female

DRUGS (7)
  1. IBUPROFEN [Suspect]
     Indication: PAIN IN EXTREMITY
     Dosage: 400 MG, 3X/DAY
     Route: 048
     Dates: start: 20020703, end: 20020708
  2. ASPIRIN [Concomitant]
     Indication: PROPHYLAXIS
     Dosage: 75 MILLIGRAM, QD
     Route: 048
  3. BUMETANIDE [Concomitant]
     Indication: CARDIAC FAILURE CONGESTIVE
     Dosage: 2 MILLIGRAM, QD
     Route: 048
     Dates: end: 20020718
  4. BUMETANIDE [Concomitant]
     Dosage: 1 MILLIGRAM, QD
     Route: 048
     Dates: end: 20020718
  5. IMDUR [Concomitant]
     Indication: ANGINA PECTORIS
     Dosage: 90 MILLIGRAM, QD
     Route: 048
  6. NICORANDIL [Concomitant]
     Indication: ANGINA PECTORIS
     Dosage: 20 MILLIGRAM, BID
  7. SPIRONOLACTONE [Concomitant]
     Dosage: 25 MILLIGRAM, QD
     Route: 048
     Dates: end: 20020718

REACTIONS (2)
  - Blood urea increased [Recovered/Resolved]
  - Blood creatinine increased [Recovered/Resolved]
